FAERS Safety Report 8058950-3 (Version None)
Quarter: 2012Q1

REPORT INFORMATION
  Report Type: 
  Country: None (occurrence: None)
  Receive Date: 20120119
  Receipt Date: 20120119
  Transmission Date: 20120608
  Serious: Yes (Hospitalization)
  Sender: FDA-Public Use
  Company Number: None

PATIENT
  Age: 91 Year
  Sex: Male
  Weight: 90 kg

DRUGS (10)
  1. TRAZODONE HCL [Concomitant]
  2. VHC [Concomitant]
  3. APAP TAB [Concomitant]
  4. PRAVASTATIN [Concomitant]
  5. LASIX [Concomitant]
  6. NAPROSYN [Suspect]
     Dosage: 500 MG BID PO CHRONIC
  7. CALCIUM + VIT D [Concomitant]
  8. CHOLCHICINE [Concomitant]
  9. MAG OX [Concomitant]
  10. NIFEDIPINE [Concomitant]

REACTIONS (2)
  - ANAEMIA [None]
  - MENTAL STATUS CHANGES [None]
